FAERS Safety Report 11648891 (Version 1)
Quarter: 2015Q4

REPORT INFORMATION
  Report Type: Spontaneous
  Country: JP (occurrence: JP)
  Receive Date: 20151021
  Receipt Date: 20151021
  Transmission Date: 20160304
  Serious: Yes (Life-Threatening, Hospitalization)
  Sender: FDA-Public Use
  Company Number: JP-PFIZER INC-2015353146

PATIENT
  Age: 5 Year
  Sex: Female
  Weight: 8 kg

DRUGS (3)
  1. ENSURE [Concomitant]
     Active Substance: AMINO ACIDS\DEXTROSE\ELECTROLYTES NOS\SOYBEAN OIL\VITAMINS
  2. THYRADIN S [Concomitant]
     Active Substance: LEVOTHYROXINE SODIUM
     Indication: HYPOTHYROIDISM
     Dosage: 15 ?G, 1X/DAY
     Route: 048
     Dates: start: 20071025, end: 2009
  3. GENOTROPIN [Suspect]
     Active Substance: SOMATROPIN
     Indication: PRADER-WILLI SYNDROME
     Dosage: 0.2 MG, DAILY
     Route: 058
     Dates: start: 20070426, end: 2009

REACTIONS (10)
  - Mood altered [Recovered/Resolved]
  - Headache [Recovered/Resolved]
  - Urine output decreased [Recovered/Resolved]
  - Hyponatraemia [Recovered/Resolved]
  - Condition aggravated [Unknown]
  - Scoliosis [Unknown]
  - Decreased appetite [Recovered/Resolved]
  - Seizure [Recovered/Resolved]
  - Weight increased [Recovered/Resolved]
  - Drug ineffective [Unknown]

NARRATIVE: CASE EVENT DATE: 20090203
